FAERS Safety Report 9538754 (Version 1)
Quarter: 2013Q3

REPORT INFORMATION
  Report Type: Spontaneous
  Country: FR (occurrence: FR)
  Receive Date: 20130920
  Receipt Date: 20130920
  Transmission Date: 20140515
  Serious: Yes (Other)
  Sender: FDA-Public Use
  Company Number: FR-VERTEX PHARMACEUTICALS INC-2013-009727

PATIENT
  Age: 64 Year
  Sex: Male

DRUGS (5)
  1. INCIVO [Suspect]
     Indication: HEPATITIS C
     Dosage: 375 MG, UNK
     Route: 065
     Dates: start: 2013
  2. SOFOSBUVIR [Concomitant]
     Indication: HEPATITIS C
     Dosage: DOSAGE FORM: UNSPECIFIED, INITIATED SINCE 1 MONTH
     Route: 065
     Dates: start: 201308
  3. RIBAVIRINE [Concomitant]
     Indication: PRODUCT USED FOR UNKNOWN INDICATION
     Dosage: DOSAGE FORM: UNSPECIFIED, INITIATED SINCE THE BEGINNING
     Route: 065
  4. TACROLIMUS [Concomitant]
     Indication: RENAL TRANSPLANT
     Dosage: DOSAGE FORM: UNSPECIFIED
     Route: 065
  5. TACROLIMUS [Concomitant]
     Indication: LIVER TRANSPLANT

REACTIONS (2)
  - Anal ulcer [Unknown]
  - Off label use [Unknown]
